FAERS Safety Report 13761701 (Version 1)
Quarter: 2017Q3

REPORT INFORMATION
  Report Type: Spontaneous
  Country: ZA (occurrence: ZA)
  Receive Date: 20170718
  Receipt Date: 20170718
  Transmission Date: 20171127
  Serious: Yes (Other)
  Sender: FDA-Public Use
  Company Number: ZA-BAXTER-2017BAX027428

PATIENT
  Sex: Female

DRUGS (2)
  1. TISSEEL LYO [Suspect]
     Active Substance: FIBRINOGEN HUMAN\THROMBIN HUMAN
     Indication: PTERYGIUM OPERATION
     Dosage: ON FIRST EYE
     Route: 065
     Dates: start: 20161212
  2. TISSEEL LYO [Suspect]
     Active Substance: FIBRINOGEN HUMAN\THROMBIN HUMAN
     Dosage: ON SECOND EYE
     Route: 065
     Dates: start: 20170330

REACTIONS (3)
  - Gait inability [Unknown]
  - General physical health deterioration [Unknown]
  - Nausea [Unknown]
